FAERS Safety Report 17912549 (Version 3)
Quarter: 2021Q1

REPORT INFORMATION
  Report Type: Spontaneous
  Country: None (occurrence: FR)
  Receive Date: 20200618
  Receipt Date: 20210219
  Transmission Date: 20210419
  Serious: Yes (Hospitalization, Other)
  Sender: FDA-Public Use
  Company Number: FR-SA-2019SA350913

PATIENT
  Age: 50 Year
  Sex: Male

DRUGS (3)
  1. DUPIXENT [Suspect]
     Active Substance: DUPILUMAB
     Indication: DERMATITIS ATOPIC
     Dosage: 300 MG, QOW
     Dates: start: 201903, end: 201907
  2. OSMOGEL [LIDOCAINE HYDROCHLORIDE;MAGNESIUM SULFATE] [Concomitant]
     Dosage: UNK, UNK UNK
  3. DUPIXENT [Suspect]
     Active Substance: DUPILUMAB
     Dosage: 300 MG, QOW
     Dates: start: 201907, end: 20190822

REACTIONS (25)
  - Hyperleukocytosis [Unknown]
  - Rash pustular [Unknown]
  - Neutrophil count increased [Unknown]
  - Hypertension [Unknown]
  - Skin maceration [Unknown]
  - Pustular psoriasis [Recovering/Resolving]
  - Diabetes mellitus [Unknown]
  - Acute generalised exanthematous pustulosis [Unknown]
  - Eosinophilic cellulitis [Unknown]
  - Condition aggravated [Not Recovered/Not Resolved]
  - Intertrigo [Recovering/Resolving]
  - Pyrexia [Not Recovered/Not Resolved]
  - Myalgia [Unknown]
  - Intentional dose omission [Unknown]
  - Epidermal necrosis [Unknown]
  - Hypokalaemia [Unknown]
  - Rash pustular [Not Recovered/Not Resolved]
  - Weight decreased [Unknown]
  - Rash [Recovering/Resolving]
  - Eczema [Recovering/Resolving]
  - Dermatitis [Unknown]
  - Limb injury [Unknown]
  - Rash erythematous [Recovering/Resolving]
  - Abdominal pain [Recovering/Resolving]
  - Eczema asteatotic [Unknown]

NARRATIVE: CASE EVENT DATE: 2019
